FAERS Safety Report 7324694-6 (Version None)
Quarter: 2011Q1

REPORT INFORMATION
  Report Type: 
  Country: None (occurrence: None)
  Receive Date: 20110301
  Receipt Date: 20110218
  Transmission Date: 20110831
  Serious: Yes (Death)
  Sender: FDA-Public Use
  Company Number: TW-BAXTER-2011BH004457

PATIENT
  Age: 79 Year
  Sex: Male

DRUGS (4)
  1. EXTRANEAL [Suspect]
     Route: 033
     Dates: start: 20091001
  2. EXTRANEAL [Suspect]
     Indication: PERITONEAL DIALYSIS
     Route: 033
     Dates: start: 20091001
  3. DIANEAL [Suspect]
     Indication: PERITONEAL DIALYSIS
     Route: 033
     Dates: start: 20091001
  4. DIANEAL [Suspect]
     Route: 033
     Dates: start: 20091001

REACTIONS (1)
  - DEATH [None]
